FAERS Safety Report 21224456 (Version 2)
Quarter: 2022Q3

REPORT INFORMATION
  Report Type: Report from Study
  Country: FR (occurrence: FR)
  Receive Date: 20220817
  Receipt Date: 20220825
  Transmission Date: 20221027
  Serious: Yes (Hospitalization)
  Sender: FDA-Public Use
  Company Number: FR-CC-90009-AML-002-4011001-20210304-0002SG

PATIENT
  Age: 73 Year
  Sex: Male
  Weight: 86 kg

DRUGS (22)
  1. AZACITIDINE [Suspect]
     Active Substance: AZACITIDINE
     Indication: Acute myeloid leukaemia
     Route: 058
     Dates: start: 20210219
  2. VENETOCLAX [Suspect]
     Active Substance: VENETOCLAX
     Indication: Acute myeloid leukaemia
     Route: 048
     Dates: start: 20210219
  3. SMECTA [Concomitant]
     Active Substance: MONTMORILLONITE
     Indication: Diarrhoea
     Route: 048
     Dates: start: 20210224, end: 20210301
  4. LERCANDIPINE [Concomitant]
     Indication: Hypertension
     Route: 048
     Dates: end: 20210326
  5. CALCIDOSE [Concomitant]
     Indication: Prophylaxis
     Dosage: 3 IN 1 DAY
     Route: 048
     Dates: start: 20210218, end: 20210328
  6. TRIMEBUTINE MALEATE [Concomitant]
     Active Substance: TRIMEBUTINE MALEATE
     Indication: Prophylaxis
     Dosage: FREQUENCY TEXT: PRN?50 MG X PRN
     Route: 042
     Dates: start: 20210225, end: 20210228
  7. FUROSEMIDE [Concomitant]
     Active Substance: FUROSEMIDE
     Indication: Prophylaxis
     Dosage: FREQUENCY TEXT: PRN?20 MG X PRN
     Route: 048
     Dates: start: 20210220, end: 20210225
  8. LEUCOVORIN CALCIUM [Concomitant]
     Active Substance: LEUCOVORIN CALCIUM
     Indication: Prophylaxis
     Route: 048
     Dates: start: 20210306
  9. LEUCOVORIN CALCIUM [Concomitant]
     Active Substance: LEUCOVORIN CALCIUM
     Indication: Haematotoxicity
     Dosage: 1 DOSAGE FORM = 1 TABLET
     Route: 048
     Dates: end: 20210218
  10. ROCALTROL [Concomitant]
     Active Substance: CALCITRIOL
     Indication: Vitamin D deficiency
     Route: 048
     Dates: start: 20210220, end: 202103
  11. PHLOROGLUCINOL [Concomitant]
     Active Substance: PHLOROGLUCINOL
     Indication: Prophylaxis
     Dosage: 6 IN 1 DAY
     Route: 042
     Dates: start: 20210224, end: 20210422
  12. CHOLECALCIFEROL [Concomitant]
     Active Substance: CHOLECALCIFEROL
     Indication: Prophylaxis
     Dosage: 80000 IU X 1 X 1 DAYS
     Route: 048
     Dates: start: 20210218, end: 20210402
  13. POSACONAZOLE [Concomitant]
     Active Substance: POSACONAZOLE
     Indication: Infection prophylaxis
     Route: 048
     Dates: end: 20210218
  14. ATOVAQUONE [Concomitant]
     Active Substance: ATOVAQUONE
     Indication: Bacterial infection
     Route: 048
     Dates: end: 20210218
  15. IMOVANE [Concomitant]
     Active Substance: ZOPICLONE
     Indication: Insomnia
     Dosage: 1 DOSAGE FORM = 0.5 TABLET
     Route: 048
     Dates: start: 20210221, end: 20210301
  16. PRIMPERAN [Concomitant]
     Active Substance: METOCLOPRAMIDE HYDROCHLORIDE
     Indication: Nausea
     Dosage: 1 DOSAGE FORM = 1 VIAL, 3 IN 1 DAY
     Route: 042
     Dates: start: 20210218, end: 20210422
  17. ZOLPIDEM TARTRATE [Concomitant]
     Active Substance: ZOLPIDEM TARTRATE
     Indication: Anxiety
     Dosage: 1 DOSAGE FORM = 1 TABLET, 3 IN 1 DAY
     Route: 048
     Dates: start: 20210222, end: 20210416
  18. MOTILIUM [Concomitant]
     Active Substance: DOMPERIDONE
     Indication: Nausea
     Route: 048
     Dates: start: 20210223, end: 20210223
  19. MOTILIUM [Concomitant]
     Active Substance: DOMPERIDONE
     Route: 048
     Dates: start: 20210225, end: 20210225
  20. RACECADOTRIL [Concomitant]
     Active Substance: RACECADOTRIL
     Indication: Diarrhoea
     Route: 048
     Dates: start: 20210224
  21. VALACYCLOVIR HYDROCHLORIDE [Concomitant]
     Active Substance: VALACYCLOVIR HYDROCHLORIDE
     Indication: Prophylaxis
     Route: 048
     Dates: start: 20210218, end: 20210401
  22. ONDANSETRON [Concomitant]
     Active Substance: ONDANSETRON
     Indication: Nausea
     Route: 048
     Dates: start: 20210219, end: 20210302

REACTIONS (1)
  - Hypocalcaemia [Recovered/Resolved]

NARRATIVE: CASE EVENT DATE: 20210225
